FAERS Safety Report 6236164-7 (Version None)
Quarter: 2009Q2

REPORT INFORMATION
  Report Type: 
  Country: None (occurrence: None)
  Receive Date: 20090619
  Receipt Date: 20090608
  Transmission Date: 20091009
  Serious: Yes (Other)
  Sender: FDA-Public Use
  Company Number: US-JNJFOC-20090603277

PATIENT
  Age: 63 Year
  Sex: Female
  Weight: 63.05 kg

DRUGS (1)
  1. MYLANTA ANTACID/ANTI-GAS MINT [Suspect]
     Indication: DYSPEPSIA
     Route: 048

REACTIONS (2)
  - DYSGEUSIA [None]
  - PRODUCT TAMPERING [None]
